FAERS Safety Report 7568643-4 (Version None)
Quarter: 2011Q2

REPORT INFORMATION
  Report Type: 
  Country: None (occurrence: None)
  Receive Date: 20110623
  Receipt Date: 20110614
  Transmission Date: 20111010
  Serious: Yes (Other)
  Sender: FDA-Public Use
  Company Number: CA-JNJFOC-20110104279

PATIENT
  Sex: Male
  Weight: 90.72 kg

DRUGS (2)
  1. STELARA [Suspect]
     Indication: PSORIASIS
     Route: 058
     Dates: start: 20090601
  2. STELARA [Suspect]
     Route: 058
     Dates: start: 20101028

REACTIONS (1)
  - B-CELL LYMPHOMA [None]
